FAERS Safety Report 14356493 (Version 1)
Quarter: 2018Q1

REPORT INFORMATION
  Report Type: Spontaneous
  Country: US (occurrence: US)
  Receive Date: 20180105
  Receipt Date: 20180105
  Transmission Date: 20180509
  Serious: Yes (Death)
  Sender: FDA-Public Use
  Company Number: None

PATIENT
  Age: 27 Year
  Sex: Male

DRUGS (1)
  1. RED VEIN MAENG DA (KRATOM) [Suspect]
     Active Substance: MITRAGYNINE\HERBALS

REACTIONS (7)
  - Cerebral congestion [None]
  - Bronchial haemorrhage [None]
  - Brain oedema [None]
  - Pulmonary oedema [None]
  - Spleen congestion [None]
  - Kidney congestion [None]
  - Hepatic congestion [None]

NARRATIVE: CASE EVENT DATE: 20170806
